FAERS Safety Report 9129955 (Version 2)
Quarter: 2013Q2

REPORT INFORMATION
  Report Type: Report from Study
  Country: JP (occurrence: JP)
  Receive Date: 20130122
  Receipt Date: 20130415
  Transmission Date: 20140414
  Serious: Yes (Other)
  Sender: FDA-Public Use
  Company Number: JP-JNJFOC-20130107523

PATIENT
  Age: 71 Year
  Sex: Male
  Weight: 46 kg

DRUGS (16)
  1. SIMPONI [Suspect]
     Indication: RHEUMATOID ARTHRITIS
     Route: 058
     Dates: start: 20120905, end: 20120905
  2. SIMPONI [Suspect]
     Indication: RHEUMATOID ARTHRITIS
     Route: 058
     Dates: start: 20120808
  3. METHOTREXATE [Suspect]
     Indication: RHEUMATOID ARTHRITIS
     Dates: start: 20120509, end: 20120821
  4. METHOTREXATE [Suspect]
     Indication: RHEUMATOID ARTHRITIS
     Dates: start: 20120822
  5. PREDNISOLONE [Suspect]
     Indication: RHEUMATOID ARTHRITIS
     Dates: start: 20120509, end: 20120822
  6. PREDNISOLONE [Suspect]
     Indication: RHEUMATOID ARTHRITIS
     Dates: start: 20120509, end: 20120905
  7. PREDNISOLONE [Suspect]
     Indication: RHEUMATOID ARTHRITIS
     Dates: start: 20120905
  8. PREDNISOLONE [Suspect]
     Indication: RHEUMATOID ARTHRITIS
     Dates: start: 20030502
  9. PREDOHAN [Concomitant]
     Indication: RHEUMATOID ARTHRITIS
     Dates: start: 20120509, end: 20120905
  10. LOXOPROFEN [Concomitant]
     Indication: RHEUMATOID ARTHRITIS
  11. LANZOPRAZOLE [Concomitant]
     Indication: PROPHYLAXIS
     Route: 048
  12. IMIDAFENACIN [Concomitant]
     Indication: HYPERTONIC BLADDER
     Route: 048
  13. ONEALFA [Concomitant]
     Indication: OSTEOPOROSIS
     Route: 048
  14. IRSOGLADINE MALEATE [Concomitant]
     Indication: PROPHYLAXIS
     Route: 048
  15. L-CALCIUM ASPARTATE [Concomitant]
     Indication: OSTEOPOROSIS
     Route: 048
  16. ALENDRONATE [Concomitant]
     Indication: OSTEOPOROSIS
     Route: 048

REACTIONS (3)
  - Pneumonia fungal [Recovering/Resolving]
  - Pneumonia bacterial [Recovering/Resolving]
  - Blood beta-D-glucan increased [Recovering/Resolving]
